FAERS Safety Report 4668558-5 (Version None)
Quarter: 2005Q2

REPORT INFORMATION
  Report Type: 
  Country: None (occurrence: None)
  Receive Date: 20050518
  Receipt Date: 20050421
  Transmission Date: 20051028
  Serious: No
  Sender: FDA-Public Use
  Company Number: B0375928A

PATIENT
  Age: 59 Year
  Sex: Male
  Weight: 75.8414 kg

DRUGS (5)
  1. AVODART [Suspect]
     Indication: DRUG USE FOR UNKNOWN INDICATION
     Dosage: ORAL
     Route: 048
     Dates: start: 20050101, end: 20050101
  2. TAMSULOSIN HCL [Concomitant]
  3. PANTOPRAZOLE SODIUM [Concomitant]
  4. MIRTAZAPINE [Concomitant]
  5. FEXOFENADINE HYDROCHLORID [Concomitant]

REACTIONS (3)
  - HIGH DENSITY LIPOPROTEIN INCREASED [None]
  - MYOCARDIAL ISCHAEMIA [None]
  - THERAPY NON-RESPONDER [None]
